FAERS Safety Report 7831669-7 (Version None)
Quarter: 2011Q4

REPORT INFORMATION
  Report Type: 
  Country: None (occurrence: None)
  Receive Date: 20111021
  Receipt Date: 20111017
  Transmission Date: 20120403
  Serious: Yes (Death, Hospitalization)
  Sender: FDA-Public Use
  Company Number: PHHY2011VE91959

PATIENT
  Sex: Female

DRUGS (6)
  1. ZOLEDRONOC ACID [Suspect]
     Indication: OSTEOPOROSIS
     Dosage: 5 MG, UNK
     Route: 042
     Dates: start: 20090404
  2. LANTAL [Concomitant]
     Indication: BLOOD PRESSURE
     Dosage: UNK UKN, UNK
  3. ENBREL [Concomitant]
     Dosage: UNK UKN, UNK
  4. PAINFORT [Concomitant]
     Dosage: UNK UKN, UNK
  5. CROMAX [Concomitant]
     Indication: BLOOD PRESSURE
     Dosage: UNK UKN, UNK
  6. NEXIUM [Concomitant]
     Indication: PROPHYLAXIS AGAINST GASTROINTESTINAL ULCER
     Dosage: UNK UKN, UNK

REACTIONS (1)
  - PNEUMONIA [None]
